FAERS Safety Report 15186959 (Version 1)
Quarter: 2018Q3

REPORT INFORMATION
  Report Type: Report from Study
  Country: US (occurrence: US)
  Receive Date: 20180723
  Receipt Date: 20180723
  Transmission Date: 20181010
  Serious: No
  Sender: FDA-Public Use
  Company Number: US-EXELIXIS-CABO-18012440

PATIENT
  Sex: Male
  Weight: 97.96 kg

DRUGS (7)
  1. CABOMETYX [Suspect]
     Active Substance: CABOZANTINIB S-MALATE
     Indication: RENAL CELL CARCINOMA
     Dosage: 20 MG, MWF ALTERNATING WITH 40MG THE OTHER DAYS
     Route: 048
     Dates: start: 201801
  2. CURCUMIN [Concomitant]
     Active Substance: CURCUMIN
  3. PROBIOTIC ACIDOPHILUS [Concomitant]
     Active Substance: LACTOBACILLUS ACIDOPHILUS
  4. VITAMIN D3 [Concomitant]
     Active Substance: CHOLECALCIFEROL
  5. CARISOPRODOL. [Concomitant]
     Active Substance: CARISOPRODOL
  6. CARVEDILOL. [Concomitant]
     Active Substance: CARVEDILOL
  7. TURMERIC [Concomitant]
     Active Substance: HERBALS\TURMERIC

REACTIONS (2)
  - Muscle spasms [Unknown]
  - Oedema peripheral [Unknown]
